FAERS Safety Report 17119851 (Version 1)
Quarter: 2019Q4

REPORT INFORMATION
  Report Type: Spontaneous
  Country: FR (occurrence: FR)
  Receive Date: 20191206
  Receipt Date: 20191206
  Transmission Date: 20200122
  Serious: Yes (Hospitalization)
  Sender: FDA-Public Use
  Company Number: FR-TEVA-2019-FR-1147258

PATIENT
  Age: 73 Year
  Sex: Female

DRUGS (9)
  1. SIMVASTATINE [Suspect]
     Active Substance: SIMVASTATIN
     Indication: DYSLIPIDAEMIA
     Dosage: 20 MG
     Route: 048
     Dates: end: 20191010
  2. INEXIUM [Concomitant]
     Active Substance: ESOMEPRAZOLE
  3. GAVISCON [Concomitant]
     Active Substance: ALUMINUM HYDROXIDE\MAGNESIUM CARBONATE
  4. MIRTAZAPINE. [Concomitant]
     Active Substance: MIRTAZAPINE
  5. ZYMAD [Concomitant]
     Active Substance: CHOLECALCIFEROL
  6. CLOZAPINE. [Suspect]
     Active Substance: CLOZAPINE
     Indication: PSYCHOTIC DISORDER
     Dosage: 75 MG
     Route: 048
     Dates: start: 2018, end: 20191011
  7. DUPHALAC [Concomitant]
     Active Substance: LACTULOSE
  8. DOLIPRANE 500 MG, POUDRE POUR SOLUTION BUVABLE EN SACHET-DOSE [Concomitant]
  9. NORMACOL [Concomitant]
     Active Substance: HERBALS\KARAYA GUM

REACTIONS (1)
  - Pleural effusion [Recovered/Resolved]

NARRATIVE: CASE EVENT DATE: 20191010
